FAERS Safety Report 4735850-5 (Version None)
Quarter: 2005Q3

REPORT INFORMATION
  Report Type: 
  Country: None (occurrence: None)
  Receive Date: 20050804
  Receipt Date: 20050804
  Transmission Date: 20060218
  Serious: Yes (Other)
  Sender: FDA-Public Use
  Company Number: None

PATIENT
  Sex: Female
  Weight: 57.1532 kg

DRUGS (6)
  1. ENBREL [Suspect]
     Indication: PSORIATIC ARTHROPATHY
     Dosage: 25 MG TWICE WEEKLY SUBCUTANEOUS
     Route: 058
     Dates: start: 20000611, end: 20030518
  2. SYNTHROID [Concomitant]
  3. TYLENOL (CAPLET) [Concomitant]
  4. VIVELLE ESTROGEN PATCH [Concomitant]
  5. AMBIEN [Concomitant]
  6. NEURONTIN [Concomitant]

REACTIONS (10)
  - BALANCE DISORDER [None]
  - CONVULSION [None]
  - DEMYELINATION [None]
  - DISTURBANCE IN ATTENTION [None]
  - DIZZINESS [None]
  - DYSPHAGIA [None]
  - ELECTROENCEPHALOGRAM ABNORMAL [None]
  - HYPOAESTHESIA [None]
  - MULTIPLE SCLEROSIS [None]
  - PARAESTHESIA [None]
